FAERS Safety Report 11383208 (Version 1)
Quarter: 2015Q3

REPORT INFORMATION
  Report Type: Spontaneous
  Country: US (occurrence: US)
  Receive Date: 20150814
  Receipt Date: 20150814
  Transmission Date: 20151125
  Serious: No
  Sender: FDA-Public Use
  Company Number: US-VIVUS-2015V1000304

PATIENT
  Age: 54 Year
  Sex: Male
  Weight: 189.77 kg

DRUGS (1)
  1. QSYMIA [Suspect]
     Active Substance: PHENTERMINE HYDROCHLORIDE\TOPIRAMATE
     Indication: WEIGHT DECREASED
     Route: 048
     Dates: start: 20150605, end: 20150618

REACTIONS (4)
  - Pyrexia [Recovered/Resolved]
  - Sinusitis [Recovered/Resolved]
  - Headache [Recovered/Resolved]
  - Urinary tract infection [Recovered/Resolved]

NARRATIVE: CASE EVENT DATE: 20150618
